FAERS Safety Report 8289092-X (Version None)
Quarter: 2012Q2

REPORT INFORMATION
  Report Type: 
  Country: None (occurrence: None)
  Receive Date: 20120417
  Receipt Date: 20120410
  Transmission Date: 20120825
  Serious: No
  Sender: FDA-Public Use
  Company Number: US-B.I. PHARMACEUTICALS,INC./RIDGEFIELD-2011-BP-28068BP

PATIENT
  Sex: Female

DRUGS (4)
  1. MICARDIS [Concomitant]
     Indication: HYPERTENSION
     Dosage: 80 MG
     Route: 048
     Dates: start: 20111213
  2. ZOLOFT [Suspect]
     Indication: DEPRESSION
     Dosage: 25 MG
     Route: 048
     Dates: start: 20111213, end: 20111219
  3. AMLODIPINE [Concomitant]
     Indication: HYPERTENSION
     Dosage: 2.5 MG
     Route: 048
     Dates: start: 20111213
  4. MICARDIS HCT [Suspect]
     Indication: HYPERTENSION
     Route: 048
     Dates: start: 20090101, end: 20111212

REACTIONS (3)
  - POLLAKIURIA [None]
  - RENAL DISORDER [None]
  - ACCIDENTAL OVERDOSE [None]
